FAERS Safety Report 9213190 (Version 1)
Quarter: 2013Q2

REPORT INFORMATION
  Report Type: Spontaneous
  Country: US (occurrence: None)
  Receive Date: 20130403
  Receipt Date: 20130403
  Transmission Date: 20140414
  Serious: Yes (Disabling)
  Sender: FDA-Public Use
  Company Number: None

PATIENT
  Age: 69 Year
  Sex: Female
  Weight: 96.16 kg

DRUGS (5)
  1. FLUTICASONE [Suspect]
     Indication: RHINITIS
     Dosage: 2 SPRAYS EACH NOSTRIL
     Route: 045
     Dates: start: 20130301, end: 20130402
  2. TOPROL [Concomitant]
  3. PREVACID [Concomitant]
  4. RHYTHMOL [Concomitant]
  5. METHIMAZOLE [Concomitant]

REACTIONS (1)
  - Dysgeusia [None]
